FAERS Safety Report 7000780-5 (Version None)
Quarter: 2010Q3

REPORT INFORMATION
  Report Type: 
  Country: None (occurrence: None)
  Receive Date: 20100920
  Receipt Date: 20100707
  Transmission Date: 20110219
  Serious: Yes (Other)
  Sender: FDA-Public Use
  Company Number: US-ASTRAZENECA-2006UW22061

PATIENT
  Age: 23124 Day
  Sex: Male
  Weight: 122.5 kg

DRUGS (16)
  1. SEROQUEL [Suspect]
     Indication: BIPOLAR DISORDER
     Route: 048
     Dates: start: 20041012, end: 20061130
  2. SEROQUEL [Suspect]
     Indication: INSOMNIA
     Route: 048
     Dates: start: 20041012, end: 20061130
  3. SEROQUEL [Suspect]
     Indication: DEPRESSION
     Route: 048
     Dates: start: 20041012, end: 20061130
  4. SEROQUEL [Suspect]
     Dosage: 50 MG-550 MG
     Route: 048
     Dates: start: 20041012
  5. SEROQUEL [Suspect]
     Dosage: 50 MG-550 MG
     Route: 048
     Dates: start: 20041012
  6. SEROQUEL [Suspect]
     Dosage: 50 MG-550 MG
     Route: 048
     Dates: start: 20041012
  7. PROMETHAZINE [Concomitant]
     Route: 048
     Dates: start: 20040816
  8. ULTRACET [Concomitant]
     Dosage: 325 MG/37.5 MG
     Route: 048
     Dates: start: 20040816
  9. CLONAZEPAM [Concomitant]
     Route: 048
     Dates: start: 20040825
  10. ACTE/HYDROCODONE [Concomitant]
     Dosage: 500 MG/5 MG
     Route: 048
     Dates: start: 20040827
  11. CELEBREX [Concomitant]
     Route: 048
     Dates: start: 20040524
  12. PROTONIX [Concomitant]
     Dates: start: 20040917
  13. TRAMADOL [Concomitant]
     Route: 048
     Dates: start: 20040927
  14. ALBUTEROL [Concomitant]
     Dosage: 90 MCG/1 ACT
     Dates: start: 20040927
  15. LAMICTAL [Concomitant]
     Dosage: 100 MG-300 MG
     Dates: start: 20041025
  16. EFFEXOR [Concomitant]
     Indication: DEPRESSION
     Dates: start: 19900101

REACTIONS (3)
  - DIABETES MELLITUS [None]
  - DIABETIC KETOACIDOSIS [None]
  - TYPE 1 DIABETES MELLITUS [None]
